APPROVED DRUG PRODUCT: ZINC SULFATE
Active Ingredient: ZINC SULFATE
Strength: EQ 25MG BASE/5ML (EQ 5MG BASE/ML)
Dosage Form/Route: SOLUTION;INTRAVENOUS
Application: A218059 | Product #001 | TE Code: AP
Applicant: APOTEX INC
Approved: Jun 10, 2024 | RLD: No | RS: No | Type: RX